FAERS Safety Report 15790380 (Version 1)
Quarter: 2019Q1

REPORT INFORMATION
  Report Type: Spontaneous
  Country: US (occurrence: US)
  Receive Date: 20190103
  Receipt Date: 20190103
  Transmission Date: 20190417
  Serious: Yes (Other)
  Sender: FDA-Public Use
  Company Number: None

PATIENT
  Age: 28 Year
  Sex: Female
  Weight: 66.6 kg

DRUGS (7)
  1. KRATOM MAGNA RED [Suspect]
     Active Substance: HERBALS\MITRAGYNINE
     Indication: DRUG DETOXIFICATION
     Route: 048
     Dates: start: 20180801, end: 20190102
  2. METHADONE [Concomitant]
     Active Substance: METHADONE HYDROCHLORIDE
  3. ADVIL [Concomitant]
     Active Substance: IBUPROFEN
  4. KRATOM MAGNA RED [Suspect]
     Active Substance: HERBALS\MITRAGYNINE
     Indication: DRUG WITHDRAWAL SYNDROME
  5. KRATIM INDO WHITE [Suspect]
     Active Substance: HERBALS\MITRAGYNINE
     Indication: DRUG WITHDRAWAL SYNDROME
  6. ONE A DAY WOMENS [Concomitant]
  7. KRATIM INDO WHITE [Suspect]
     Active Substance: HERBALS\MITRAGYNINE
     Indication: DRUG DETOXIFICATION
     Route: 048
     Dates: start: 20180801, end: 20190102

REACTIONS (7)
  - Hypoaesthesia [None]
  - Chest pain [None]
  - Palpitations [None]
  - Product use complaint [None]
  - Cold sweat [None]
  - Cardiac flutter [None]
  - Product packaging issue [None]

NARRATIVE: CASE EVENT DATE: 20190102
